FAERS Safety Report 25774020 (Version 1)
Quarter: 2025Q3

REPORT INFORMATION
  Report Type: Spontaneous
  Country: US (occurrence: None)
  Receive Date: 20250905
  Receipt Date: 20250905
  Transmission Date: 20251021
  Serious: Yes (Life-Threatening, Hospitalization, Disabling, Other)
  Sender: FDA-CTU
  Company Number: None

PATIENT
  Age: 23 Year
  Sex: Female
  Weight: 50.85 kg

DRUGS (13)
  1. FERRIC CARBOXYMALTOSE [Suspect]
     Active Substance: FERRIC CARBOXYMALTOSE
     Indication: Serum ferritin decreased
     Dates: start: 20250324, end: 20250401
  2. GJ Tube [Concomitant]
  3. Power port [Concomitant]
  4. Blood sugar monitor [Concomitant]
  5. BUPROPION [Concomitant]
     Active Substance: BUPROPION
  6. PLAVIX [Concomitant]
     Active Substance: CLOPIDOGREL BISULFATE
  7. ASPIRIN [Concomitant]
     Active Substance: ASPIRIN
  8. Zyrtec prn [Concomitant]
  9. Zofran prn [Concomitant]
  10. Diamox prn [Concomitant]
  11. Collagen powder [Concomitant]
  12. VITAMINS [Concomitant]
     Active Substance: VITAMINS
  13. Bone strength supplement [Concomitant]

REACTIONS (13)
  - Blood phosphorus decreased [None]
  - Asthenia [None]
  - Gait disturbance [None]
  - Hypophagia [None]
  - Hypersomnia [None]
  - Diarrhoea [None]
  - Calcium ionised abnormal [None]
  - Vitamin D decreased [None]
  - Hyperparathyroidism [None]
  - Alanine aminotransferase increased [None]
  - Urine calcium decreased [None]
  - Fatigue [None]
  - Impaired quality of life [None]

NARRATIVE: CASE EVENT DATE: 20250403
